FAERS Safety Report 25715775 (Version 1)
Quarter: 2025Q3

REPORT INFORMATION
  Report Type: Report from Study
  Country: CA (occurrence: CA)
  Receive Date: 20250822
  Receipt Date: 20250822
  Transmission Date: 20251021
  Serious: Yes (Life-Threatening, Other)
  Sender: MYLAN
  Company Number: CA-MYLANLABS-2025M1070889

PATIENT
  Age: 3 Decade
  Sex: Male

DRUGS (36)
  1. CLOZAPINE [Interacting]
     Active Substance: CLOZAPINE
     Indication: Schizophrenia
  2. CLOZAPINE [Interacting]
     Active Substance: CLOZAPINE
  3. CLOZAPINE [Interacting]
     Active Substance: CLOZAPINE
     Route: 065
  4. CLOZAPINE [Interacting]
     Active Substance: CLOZAPINE
     Route: 065
  5. CLOZAPINE [Interacting]
     Active Substance: CLOZAPINE
  6. CLOZAPINE [Interacting]
     Active Substance: CLOZAPINE
  7. CLOZAPINE [Interacting]
     Active Substance: CLOZAPINE
     Route: 065
  8. CLOZAPINE [Interacting]
     Active Substance: CLOZAPINE
     Route: 065
  9. CLOZAPINE [Interacting]
     Active Substance: CLOZAPINE
     Dosage: 650 MILLIGRAM, QD, DOSE TITRATED-UP
  10. CLOZAPINE [Interacting]
     Active Substance: CLOZAPINE
     Dosage: 650 MILLIGRAM, QD, DOSE TITRATED-UP
     Route: 065
  11. CLOZAPINE [Interacting]
     Active Substance: CLOZAPINE
     Dosage: 650 MILLIGRAM, QD, DOSE TITRATED-UP
  12. CLOZAPINE [Interacting]
     Active Substance: CLOZAPINE
     Dosage: 650 MILLIGRAM, QD, DOSE TITRATED-UP
     Route: 065
  13. OLANZAPINE [Interacting]
     Active Substance: OLANZAPINE
     Indication: Schizophrenia
  14. OLANZAPINE [Interacting]
     Active Substance: OLANZAPINE
     Route: 065
  15. OLANZAPINE [Interacting]
     Active Substance: OLANZAPINE
     Route: 065
  16. OLANZAPINE [Interacting]
     Active Substance: OLANZAPINE
  17. ARIPIPRAZOLE [Concomitant]
     Active Substance: ARIPIPRAZOLE
     Indication: Schizophrenia
  18. ARIPIPRAZOLE [Concomitant]
     Active Substance: ARIPIPRAZOLE
     Route: 065
  19. ARIPIPRAZOLE [Concomitant]
     Active Substance: ARIPIPRAZOLE
     Route: 065
  20. ARIPIPRAZOLE [Concomitant]
     Active Substance: ARIPIPRAZOLE
  21. CARIPRAZINE [Concomitant]
     Active Substance: CARIPRAZINE
     Indication: Schizophrenia
  22. CARIPRAZINE [Concomitant]
     Active Substance: CARIPRAZINE
     Route: 065
  23. CARIPRAZINE [Concomitant]
     Active Substance: CARIPRAZINE
     Route: 065
  24. CARIPRAZINE [Concomitant]
     Active Substance: CARIPRAZINE
  25. MELATONIN [Concomitant]
     Active Substance: MELATONIN
     Indication: Schizophrenia
  26. MELATONIN [Concomitant]
     Active Substance: MELATONIN
     Route: 065
  27. MELATONIN [Concomitant]
     Active Substance: MELATONIN
     Route: 065
  28. MELATONIN [Concomitant]
     Active Substance: MELATONIN
  29. TRAZODONE [Concomitant]
     Active Substance: TRAZODONE HYDROCHLORIDE
     Indication: Schizophrenia
  30. TRAZODONE [Concomitant]
     Active Substance: TRAZODONE HYDROCHLORIDE
     Route: 065
  31. TRAZODONE [Concomitant]
     Active Substance: TRAZODONE HYDROCHLORIDE
     Route: 065
  32. TRAZODONE [Concomitant]
     Active Substance: TRAZODONE HYDROCHLORIDE
  33. ZUCLOPENTHIXOL [Concomitant]
     Active Substance: ZUCLOPENTHIXOL
     Indication: Schizophrenia
  34. ZUCLOPENTHIXOL [Concomitant]
     Active Substance: ZUCLOPENTHIXOL
     Route: 065
  35. ZUCLOPENTHIXOL [Concomitant]
     Active Substance: ZUCLOPENTHIXOL
     Route: 065
  36. ZUCLOPENTHIXOL [Concomitant]
     Active Substance: ZUCLOPENTHIXOL

REACTIONS (3)
  - Drug interaction [Recovered/Resolved]
  - Myocarditis [Recovered/Resolved]
  - Tachycardia [Unknown]
